FAERS Safety Report 7541978-7 (Version None)
Quarter: 2011Q2

REPORT INFORMATION
  Report Type: 
  Country: None (occurrence: None)
  Receive Date: 20110524
  Receipt Date: 20110325
  Transmission Date: 20111010
  Serious: No
  Sender: FDA-Public Use
  Company Number: 030096

PATIENT
  Sex: Female
  Weight: 57.2 kg

DRUGS (2)
  1. CIMZIA [Suspect]
     Indication: CROHN'S DISEASE
     Dosage: (400 MG 1X/2 WEEKS, LOADING DOSES SUBCUTANEOUS), (400 MG 1X/4 WEEKS SUBCUTANEOUS)
     Route: 058
     Dates: start: 20110112, end: 20110101
  2. CIMZIA [Suspect]
     Indication: CROHN'S DISEASE
     Dosage: (400 MG 1X/2 WEEKS, LOADING DOSES SUBCUTANEOUS), (400 MG 1X/4 WEEKS SUBCUTANEOUS)
     Route: 058
     Dates: start: 20110201

REACTIONS (3)
  - DEPRESSION [None]
  - FATIGUE [None]
  - ABDOMINAL PAIN UPPER [None]
